FAERS Safety Report 8531386 (Version 3)
Quarter: 2012Q4

REPORT INFORMATION
  Report Type: 
  Country: US (occurrence: US)
  Receive Date: 20120426
  Receipt Date: 20121125
  Transmission Date: 20130627
  Serious: Yes (Hospitalization)
  Sender: FDA-Public Use
  Company Number: US-BAYER-2012-040314

PATIENT
  Age: 23 Year
  Sex: Female
  Weight: 79 kg

DRUGS (13)
  1. YASMIN [Suspect]
     Indication: CONTRACEPTION
     Dosage: UNK
     Dates: start: 200609, end: 200806
  2. YASMIN [Suspect]
     Indication: MENSTRUAL DISORDER
  3. OCELLA [Suspect]
     Indication: CONTRACEPTION
     Dosage: UNK
     Dates: start: 200807, end: 200911
  4. OCELLA [Suspect]
     Indication: MENSTRUAL DISORDER
  5. RELAFEN [Concomitant]
     Indication: PAIN
     Dosage: 500 mg, QD daily, 2 times daily for 10 days
     Route: 048
     Dates: start: 20091106
  6. MULTIVITAMINS [Concomitant]
     Dosage: UNK
     Route: 048
     Dates: start: 20091106
  7. PRILOSEC [Concomitant]
  8. VITAMIN D3 [Concomitant]
  9. CALCIUM CARBONATE [Concomitant]
  10. CALCIUM W/VITAMIN D NOS [Concomitant]
  11. CAFFEINE [Concomitant]
     Indication: DEEP VEIN THROMBOSIS
  12. PERCOCET [Concomitant]
  13. TYLENOL [Concomitant]

REACTIONS (7)
  - Pulmonary embolism [None]
  - Deep vein thrombosis [None]
  - Injury [None]
  - Emotional distress [None]
  - Pain [None]
  - Pain [None]
  - Fear of disease [None]
